FAERS Safety Report 9912656 (Version 1)
Quarter: 2014Q1

REPORT INFORMATION
  Report Type: Spontaneous
  Country: AU (occurrence: None)
  Receive Date: 20140212
  Receipt Date: 20140212
  Transmission Date: 20141002
  Serious: Yes (Hospitalization, Disabling)
  Sender: FDA-Public Use
  Company Number: NSR_01514_2014

PATIENT
  Age: 39 Year
  Sex: Male

DRUGS (1)
  1. BACLOFEN [Suspect]
     Indication: PROGRESSIVE MULTIPLE SCLEROSIS
     Dosage: ([PUMP INTRATHECAL), ((PUMP, ALTERATION IN DOSAGE] DF INTRATHECAL)
     Dates: start: 201101

REACTIONS (12)
  - Muscular weakness [None]
  - Pain in extremity [None]
  - Wheelchair user [None]
  - Hypertonia [None]
  - Nuclear magnetic resonance imaging spinal abnormal [None]
  - Muscle contractions involuntary [None]
  - Muscle contractions involuntary [None]
  - Radiculopathy [None]
  - CSF protein increased [None]
  - CSF glucose decreased [None]
  - Aspergillus infection [None]
  - Device related infection [None]
